FAERS Safety Report 19362617 (Version 1)
Quarter: 2021Q2

REPORT INFORMATION
  Report Type: Spontaneous
  Country: JP (occurrence: JP)
  Receive Date: 20210602
  Receipt Date: 20210602
  Transmission Date: 20210717
  Serious: Yes (Other)
  Sender: FDA-Public Use
  Company Number: JP-ASTELLAS-2021JP009880

PATIENT
  Age: 77 Year
  Sex: Female

DRUGS (2)
  1. PROGRAF [Suspect]
     Active Substance: TACROLIMUS
     Dosage: 1.5 MG/DAY,UNKNOWN FREQ.
     Route: 048
  2. PROGRAF [Suspect]
     Active Substance: TACROLIMUS
     Indication: RHEUMATOID ARTHRITIS
     Dosage: 1.5 MG/DAY,UNKNOWN FREQ.
     Route: 048

REACTIONS (3)
  - Visual acuity reduced [Unknown]
  - Blood pressure increased [Recovering/Resolving]
  - Rheumatoid arthritis [Unknown]
